FAERS Safety Report 16842930 (Version 1)
Quarter: 2019Q3

REPORT INFORMATION
  Report Type: Spontaneous
  Country: IT (occurrence: IT)
  Receive Date: 20190924
  Receipt Date: 20190924
  Transmission Date: 20191005
  Serious: Yes (Hospitalization)
  Sender: FDA-Public Use
  Company Number: IT-ASTRAZENECA-2019SF33928

PATIENT
  Age: 35 Year
  Sex: Female

DRUGS (4)
  1. OKI [Suspect]
     Active Substance: KETOPROFEN LYSINE
     Indication: DRUG ABUSE
     Dosage: 5.0DF ONCE/SINGLE ADMINISTRATION
     Route: 048
     Dates: start: 20190914, end: 20190914
  2. MOMENT [Suspect]
     Active Substance: IBUPROFEN
     Indication: DRUG ABUSE
     Dosage: 2000.0MG ONCE/SINGLE ADMINISTRATION
     Route: 048
     Dates: start: 20190914, end: 20190914
  3. OMEPRAZOLE. [Suspect]
     Active Substance: OMEPRAZOLE
     Indication: DRUG ABUSE
     Dosage: 200.0MG ONCE/SINGLE ADMINISTRATION
     Route: 048
     Dates: start: 20190914, end: 20190914
  4. VOLMAX [Suspect]
     Active Substance: ALBUTEROL SULFATE
     Indication: DRUG ABUSE
     Dosage: 9.0DF ONCE/SINGLE ADMINISTRATION
     Route: 048
     Dates: start: 20190914, end: 20190914

REACTIONS (3)
  - Sopor [Recovering/Resolving]
  - Abdominal tenderness [Recovering/Resolving]
  - Drug abuse [Recovering/Resolving]

NARRATIVE: CASE EVENT DATE: 20190914
